FAERS Safety Report 7532726-5 (Version None)
Quarter: 2011Q2

REPORT INFORMATION
  Report Type: 
  Country: None (occurrence: None)
  Receive Date: 20110608
  Receipt Date: 20110601
  Transmission Date: 20111010
  Serious: Yes (Hospitalization)
  Sender: FDA-Public Use
  Company Number: A0929400A

PATIENT
  Sex: Male
  Weight: 103 kg

DRUGS (4)
  1. ADVAIR DISKUS 100/50 [Concomitant]
     Indication: CHRONIC OBSTRUCTIVE PULMONARY DISEASE
  2. VENTOLIN HFA [Suspect]
     Indication: CHRONIC OBSTRUCTIVE PULMONARY DISEASE
     Dosage: 100MCG AS REQUIRED
     Route: 055
  3. SPIRIVA [Concomitant]
     Indication: CHRONIC OBSTRUCTIVE PULMONARY DISEASE
     Dosage: 1SPR PER DAY
  4. COUMADIN [Concomitant]
     Route: 048
     Dates: start: 20090901

REACTIONS (4)
  - HEART RATE IRREGULAR [None]
  - HEART RATE INCREASED [None]
  - DRUG INEFFECTIVE [None]
  - DYSPNOEA [None]
